FAERS Safety Report 7691546-1 (Version None)
Quarter: 2011Q3

REPORT INFORMATION
  Report Type: 
  Country: None (occurrence: None)
  Receive Date: 20110818
  Receipt Date: 20110806
  Transmission Date: 20111222
  Serious: Yes (Other)
  Sender: FDA-Public Use
  Company Number: PHHY2011US68494

PATIENT
  Sex: Female

DRUGS (4)
  1. TEGRETOL-XR [Suspect]
     Dosage: 200 MG, UNK
  2. LISINOPRIL [Concomitant]
     Indication: CARDIAC DISORDER
     Dosage: UNK UKN, UNK
  3. ACE INHIBITORS [Concomitant]
     Dosage: UNK UKN, UNK
  4. TEGRETOL [Suspect]
     Indication: BIPOLAR I DISORDER
     Dosage: 200 MG, TID
     Route: 048
     Dates: start: 20110621

REACTIONS (18)
  - URINARY TRACT INFECTION [None]
  - PSYCHOTIC DISORDER [None]
  - MYALGIA [None]
  - WEIGHT DECREASED [None]
  - ATROPHY [None]
  - RENAL IMPAIRMENT [None]
  - PAIN [None]
  - TREMOR [None]
  - HYPERHIDROSIS [None]
  - DEHYDRATION [None]
  - WRONG TECHNIQUE IN DRUG USAGE PROCESS [None]
  - BURNING SENSATION [None]
  - HEAT EXHAUSTION [None]
  - MUSCULAR WEAKNESS [None]
  - MULTI-ORGAN DISORDER [None]
  - FEELING ABNORMAL [None]
  - MUSCLE SPASMS [None]
  - MUSCLE CONTRACTURE [None]
